FAERS Safety Report 9227747 (Version 1)
Quarter: 2013Q1

REPORT INFORMATION
  Report Type: Spontaneous
  Country: US (occurrence: None)
  Receive Date: 20121012
  Receipt Date: 20121012
  Transmission Date: 20140127
  Serious: Yes (Other)
  Sender: FDA-Public Use
  Company Number: 1000024939

PATIENT
  Age: 43 Year
  Sex: Female

DRUGS (4)
  1. LEXAPRO [Suspect]
     Indication: DEPRESSION
     Route: 048
     Dates: start: 201004, end: 20110105
  2. LIPOFEN (FENOFIBRATE) (FENOFIBRATE) [Concomitant]
  3. VICODIN (HYDROCODONE, ACETAMINOPHEN) (HYDROCODONE ACETAMINOPHEN) [Concomitant]
  4. VALIUM (DIAZEPAM) (DIAZEPAM) [Concomitant]

REACTIONS (1)
  - Suicidal ideation [None]
